FAERS Safety Report 9055521 (Version 3)
Quarter: 2013Q3

REPORT INFORMATION
  Report Type: Spontaneous
  Country: JP (occurrence: JP)
  Receive Date: 20130206
  Receipt Date: 20130708
  Transmission Date: 20140515
  Serious: Yes (Hospitalization)
  Sender: FDA-Public Use
  Company Number: JP-GLAXOSMITHKLINE-B0858095A

PATIENT
  Age: 27 Year
  Sex: Male
  Weight: 67 kg

DRUGS (10)
  1. LAMICTAL [Suspect]
     Indication: BIPOLAR DISORDER
     Dosage: 1IUAX PER DAY
     Route: 048
     Dates: start: 20120927, end: 20121003
  2. LAMICTAL [Suspect]
     Indication: BIPOLAR DISORDER
     Dosage: 2IUAX PER DAY
     Route: 048
     Dates: start: 20121004, end: 20121111
  3. HALCION [Concomitant]
     Dosage: .25MG PER DAY
     Route: 048
  4. MYSLEE [Concomitant]
     Dosage: 10MG PER DAY
     Route: 048
  5. ROHYPNOL [Concomitant]
     Dosage: 2MG PER DAY
     Route: 048
  6. ZYPREXA [Concomitant]
     Dosage: 5MG PER DAY
     Route: 048
  7. LIMAS [Concomitant]
     Dosage: 600MG PER DAY
     Route: 048
  8. SEROQUEL [Concomitant]
     Route: 048
  9. RIVOTRIL [Concomitant]
     Route: 048
  10. SEPAZON [Concomitant]
     Route: 048

REACTIONS (8)
  - Drug eruption [Recovered/Resolved]
  - Generalised erythema [Unknown]
  - Face oedema [Unknown]
  - Eczema asteatotic [Unknown]
  - Urticaria [Unknown]
  - Erythema of eyelid [Unknown]
  - Eyelid oedema [Unknown]
  - Pyrexia [Unknown]
